FAERS Safety Report 9855199 (Version 2)
Quarter: 2014Q2

REPORT INFORMATION
  Report Type: Spontaneous
  Country: US (occurrence: US)
  Receive Date: 20140130
  Receipt Date: 20140415
  Transmission Date: 20141212
  Serious: Yes (Life-Threatening, Hospitalization, Other)
  Sender: FDA-Public Use
  Company Number: US-BAYER-2014-013379

PATIENT
  Age: 36 Year
  Sex: Female
  Weight: 154.65 kg

DRUGS (1)
  1. MIRENA [Suspect]
     Dosage: 20 MCG/24HR, CONT
     Route: 015
     Dates: start: 20100326

REACTIONS (8)
  - Injury [None]
  - Embedded device [None]
  - Abdominal pain lower [None]
  - General physical health deterioration [None]
  - Anxiety [None]
  - Anhedonia [None]
  - Pain [None]
  - Emotional distress [None]
